FAERS Safety Report 12676645 (Version 1)
Quarter: 2016Q3

REPORT INFORMATION
  Report Type: Spontaneous
  Country: GB (occurrence: GB)
  Receive Date: 20160823
  Receipt Date: 20160823
  Transmission Date: 20161109
  Serious: Yes (Life-Threatening)
  Sender: FDA-Public Use
  Company Number: GB-JNJFOC-20160812811

PATIENT
  Age: 49 Year
  Sex: Female
  Weight: 76 kg

DRUGS (8)
  1. IBUPROFEN. [Suspect]
     Active Substance: IBUPROFEN
     Route: 065
  2. CITALOPRAM [Concomitant]
     Active Substance: CITALOPRAM HYDROBROMIDE
     Indication: PRODUCT USED FOR UNKNOWN INDICATION
     Dosage: DOSE: 1 (UNIT NOT SPECIFIED)
     Route: 065
     Dates: start: 20160705, end: 20160721
  3. FULTIUM [Concomitant]
     Active Substance: CHOLECALCIFEROL
     Indication: PRODUCT USED FOR UNKNOWN INDICATION
     Dosage: DOSE: 1 (UNIT NOT SPECIFIED)
     Route: 065
     Dates: start: 20160722
  4. PIROXICAM. [Concomitant]
     Active Substance: PIROXICAM
     Indication: PRODUCT USED FOR UNKNOWN INDICATION
     Dosage: APPLY AS DIRECTED
     Route: 065
     Dates: start: 20160725
  5. VENLAFAXINE [Concomitant]
     Active Substance: VENLAFAXINE HYDROCHLORIDE
     Indication: PRODUCT USED FOR UNKNOWN INDICATION
     Dosage: DOSE: 1 (UNIT NOT SPECIFIED)
     Route: 065
     Dates: start: 20160706, end: 20160803
  6. SERTRALINE [Concomitant]
     Active Substance: SERTRALINE HYDROCHLORIDE
     Indication: PRODUCT USED FOR UNKNOWN INDICATION
     Dosage: DOSE: 1 (UNIT NOT SPECIFIED)
     Route: 065
     Dates: start: 20160712
  7. FLUOXETINE [Concomitant]
     Active Substance: FLUOXETINE HYDROCHLORIDE
     Indication: PRODUCT USED FOR UNKNOWN INDICATION
     Dosage: DOSE: 2 (UNIT NOT SPECIFIED) AS DIRECTED BY SPECIALIST
     Route: 065
     Dates: start: 20160316, end: 20160712
  8. IBUPROFEN. [Suspect]
     Active Substance: IBUPROFEN
     Indication: PRODUCT USED FOR UNKNOWN INDICATION
     Route: 065
     Dates: start: 20160805

REACTIONS (2)
  - Dyspnoea [Unknown]
  - Chest discomfort [Unknown]
